FAERS Safety Report 6525590-4 (Version None)
Quarter: 2010Q1

REPORT INFORMATION
  Report Type: 
  Country: None (occurrence: None)
  Receive Date: 20100104
  Receipt Date: 20091221
  Transmission Date: 20100710
  Serious: Yes (Hospitalization)
  Sender: FDA-Public Use
  Company Number: DE-PFIZER INC-2009304615

PATIENT
  Age: 70 Year
  Sex: Female
  Weight: 68 kg

DRUGS (13)
  1. SUNITINIB MALATE [Suspect]
     Indication: ACUTE MYELOID LEUKAEMIA
     Dosage: 25 MG, 1X/DAY
     Route: 048
     Dates: start: 20091127, end: 20091202
  2. CYTARABINE [Suspect]
     Indication: ACUTE MYELOID LEUKAEMIA
     Dosage: 179 MG, 1X/DAY
     Route: 042
     Dates: start: 20091126, end: 20091202
  3. DAUNORUBICIN HCL [Suspect]
     Indication: ACUTE MYELOID LEUKAEMIA
     Dosage: 107.4 MG, 1X/DAY
     Route: 042
     Dates: start: 20091126, end: 20091128
  4. ALLOPURINOL [Concomitant]
     Indication: HYPERURICAEMIA
     Dosage: 300 MG, UNK
     Route: 048
     Dates: start: 20091110, end: 20091129
  5. PANTOPRAZOLE [Concomitant]
     Indication: PROPHYLAXIS
     Dosage: 40 MG, UNK
     Route: 048
     Dates: start: 20091110
  6. HYDROXYCARBAMIDE [Concomitant]
     Indication: CYTOREDUCTIVE SURGERY
     Dosage: 500 MG, UNK
     Route: 048
     Dates: start: 20091110, end: 20091125
  7. ONDANSETRON [Concomitant]
     Indication: PROPHYLAXIS
     Dosage: 8 MG, UNK
     Route: 048
     Dates: start: 20091126
  8. TAVANIC [Concomitant]
     Indication: PROPHYLAXIS
     Dosage: 500 MG, UNK
     Route: 048
     Dates: start: 20091117
  9. FLUCONAZOLE [Concomitant]
     Indication: PROPHYLAXIS
     Dosage: 100 MG, UNK
     Route: 048
     Dates: start: 20091120
  10. PARACODIN BITARTRATE TAB [Concomitant]
     Indication: COUGH
     Dosage: 15 DF, UNK
     Route: 048
     Dates: start: 20091125, end: 20091130
  11. SAB SIMPLEX [Concomitant]
     Indication: FLATULENCE
     Dosage: UNK
     Route: 048
     Dates: start: 20091128, end: 20091128
  12. FORTECORTIN [Concomitant]
     Indication: PROPHYLAXIS
     Dosage: 4 MG, UNK
     Route: 048
     Dates: start: 20091126
  13. KONAKION [Concomitant]
     Indication: VITAMIN K DEFICIENCY
     Dosage: 1 AMPULE
     Route: 042
     Dates: start: 20091125, end: 20091125

REACTIONS (4)
  - ENTEROCOLITIS [None]
  - HYPERBILIRUBINAEMIA [None]
  - NEUTROPENIA [None]
  - PYREXIA [None]
